FAERS Safety Report 20091116 (Version 4)
Quarter: 2022Q1

REPORT INFORMATION
  Report Type: Spontaneous
  Country: IN (occurrence: IN)
  Receive Date: 20211119
  Receipt Date: 20220210
  Transmission Date: 20220423
  Serious: Yes (Other)
  Sender: FDA-Public Use
  Company Number: IN-PFIZER INC-2020089580

PATIENT
  Age: 50 Year
  Sex: Female

DRUGS (1)
  1. CRIZOTINIB [Suspect]
     Active Substance: CRIZOTINIB
     Indication: Lung adenocarcinoma
     Dosage: 250 MG, 2X/DAY (1 HOUR BEFORE OR 2 HOURS AFTER HOOD)
     Route: 048
     Dates: start: 20190504

REACTIONS (10)
  - Tuberculoma of central nervous system [Unknown]
  - Malaise [Unknown]
  - Pyrexia [Unknown]
  - Abdominal pain upper [Unknown]
  - Abdominal distension [Unknown]
  - Decreased appetite [Unknown]
  - Generalised oedema [Unknown]
  - Central nervous system lesion [Unknown]
  - Nasopharyngitis [Unknown]
  - Nausea [Unknown]
